FAERS Safety Report 7449852-1 (Version None)
Quarter: 2011Q2

REPORT INFORMATION
  Report Type: 
  Country: None (occurrence: None)
  Receive Date: 20110502
  Receipt Date: 20110419
  Transmission Date: 20111010
  Serious: Yes (Other)
  Sender: FDA-Public Use
  Company Number: US-BAYER-2011-034702

PATIENT
  Sex: Female

DRUGS (1)
  1. CLIMARA PRO [Suspect]
     Indication: MENOPAUSAL SYMPTOMS
     Dosage: 0.045 MG, UNK

REACTIONS (5)
  - CHEST PAIN [None]
  - HOT FLUSH [None]
  - PRODUCT QUALITY ISSUE [None]
  - PANIC ATTACK [None]
  - DEPRESSION [None]
